FAERS Safety Report 25456390 (Version 6)
Quarter: 2025Q4

REPORT INFORMATION
  Report Type: Spontaneous
  Country: US (occurrence: US)
  Receive Date: 20250619
  Receipt Date: 20251111
  Transmission Date: 20260118
  Serious: Yes (Hospitalization, Disabling, Other)
  Sender: SANOFI AVENTIS
  Company Number: US-SA-2025SA141419

PATIENT
  Age: 26 Year
  Sex: Male

DRUGS (1)
  1. ALTUVIIIO [Suspect]
     Active Substance: EFANESOCTOCOG ALFA
     Indication: Prophylaxis
     Dosage: 4430 U (+/-10%), QW PROPHYLACTICALLY
     Route: 042

REACTIONS (11)
  - Sensory loss [Recovered/Resolved]
  - Asthenia [Not Recovered/Not Resolved]
  - Mobility decreased [Unknown]
  - Loss of consciousness [Unknown]
  - Pain in extremity [Unknown]
  - Gait disturbance [Unknown]
  - Hospitalisation [Unknown]
  - Dysstasia [Unknown]
  - Body temperature abnormal [Unknown]
  - Psoriasis [Unknown]
  - Skin haemorrhage [Unknown]

NARRATIVE: CASE EVENT DATE: 20250513
